FAERS Safety Report 7883233-1 (Version None)
Quarter: 2011Q4

REPORT INFORMATION
  Report Type: 
  Country: None (occurrence: None)
  Receive Date: 20111031
  Receipt Date: 20111014
  Transmission Date: 20120403
  Serious: Yes (Hospitalization)
  Sender: FDA-Public Use
  Company Number: UTC-011296

PATIENT
  Age: 42 Year
  Sex: Female
  Weight: 84.09 kg

DRUGS (5)
  1. REMODULIN [Suspect]
     Indication: PULMONARY ARTERIAL HYPERTENSION
     Dosage: 12.96 UG/KG (0.009 UG/KG, 1 IN 1 MIN), SUBCUTANEOUS; 10.08 UG/KG (0.007 UG/KG, 1 IN 1 MIN), SUBCUTAN
     Route: 059
     Dates: start: 20110729
  2. REMODULIN [Suspect]
     Indication: PULMONARY ARTERIAL HYPERTENSION
     Dosage: 12.96 UG/KG (0.009 UG/KG, 1 IN 1 MIN), SUBCUTANEOUS; 10.08 UG/KG (0.007 UG/KG, 1 IN 1 MIN), SUBCUTAN
     Route: 059
     Dates: start: 20110729
  3. DIURETICS [Concomitant]
  4. REVATIO [Concomitant]
  5. COUMADIN [Concomitant]

REACTIONS (4)
  - PAIN IN EXTREMITY [None]
  - ASTHENIA [None]
  - ABDOMINAL PAIN UPPER [None]
  - RIGHT VENTRICULAR FAILURE [None]
